FAERS Safety Report 20633460 (Version 18)
Quarter: 2024Q4

REPORT INFORMATION
  Report Type: Spontaneous
  Country: IN (occurrence: IN)
  Receive Date: 20220324
  Receipt Date: 20241114
  Transmission Date: 20250115
  Serious: Yes (Hospitalization, Other)
  Sender: PFIZER
  Company Number: IN-PFIZER INC-2021082328

PATIENT
  Age: 56 Year
  Sex: Female
  Weight: 54.7 kg

DRUGS (9)
  1. LORLATINIB [Suspect]
     Active Substance: LORLATINIB
     Indication: Lung adenocarcinoma
     Dosage: 100 MG, 1X/DAY
     Route: 048
     Dates: start: 20201102
  2. LORLATINIB [Suspect]
     Active Substance: LORLATINIB
     Dosage: 100 MG, 1X/DAY
     Route: 048
     Dates: start: 20201222
  3. LORLATINIB [Suspect]
     Active Substance: LORLATINIB
     Dosage: 100 MG, 1X/DAY
     Route: 048
     Dates: start: 20210303
  4. BECOSULES Z [Concomitant]
     Dosage: UNK
  5. LORAL [LANSOPRAZOLE] [Concomitant]
     Dosage: 2 MG, 1X/DAY
  6. IZRA-D [Concomitant]
     Dosage: 40 MG 1 HS
  7. LOPERAMIDE [Concomitant]
     Active Substance: LOPERAMIDE
     Dosage: UNK
  8. FENOSTAT [Concomitant]
     Dosage: 1 HS
  9. MUCAINE [ALUMINIUM HYDROXIDE GEL;MAGNESIUM HYDROXIDE;OXETACAINE] [Concomitant]
     Dosage: 2 TSP, 3X/DAY

REACTIONS (16)
  - Abdominal pain upper [Not Recovered/Not Resolved]
  - Neck pain [Recovering/Resolving]
  - Back pain [Recovered/Resolved]
  - Cervical vertebral fracture [Recovering/Resolving]
  - Cerebral atrophy [Unknown]
  - Pneumothorax [Unknown]
  - COVID-19 [Recovered/Resolved]
  - Dyspnoea [Recovering/Resolving]
  - Pulmonary mass [Not Recovered/Not Resolved]
  - Atelectasis [Not Recovered/Not Resolved]
  - Breast mass [Not Recovered/Not Resolved]
  - Haemoglobin decreased [Not Recovered/Not Resolved]
  - Insomnia [Recovering/Resolving]
  - Oropharyngeal pain [Recovered/Resolved]
  - Dyspepsia [Not Recovered/Not Resolved]
  - Blood cholesterol abnormal [Not Recovered/Not Resolved]

NARRATIVE: CASE EVENT DATE: 20210303
